FAERS Safety Report 8890272 (Version 1)
Quarter: 2012Q4

REPORT INFORMATION
  Report Type: 
  Country: CA (occurrence: CA)
  Receive Date: 20121106
  Receipt Date: 20121106
  Transmission Date: 20130627
  Serious: Yes (Other)
  Sender: FDA-Public Use
  Company Number: PHHY2000CA003424

PATIENT
  Age: 74 Year
  Sex: Female

DRUGS (1)
  1. EXELON [Suspect]
     Dosage: 3.0 mg, BID
     Dates: start: 20000830

REACTIONS (3)
  - Visual impairment [Recovered/Resolved]
  - Hyperhidrosis [Recovered/Resolved]
  - Fatigue [Recovered/Resolved]
